FAERS Safety Report 6452184-1 (Version None)
Quarter: 2009Q4

REPORT INFORMATION
  Report Type: 
  Country: None (occurrence: None)
  Receive Date: 20091123
  Receipt Date: 20091110
  Transmission Date: 20100525
  Serious: Yes (Death, Hospitalization)
  Sender: FDA-Public Use
  Company Number: GB-GENENTECH-294479

PATIENT
  Age: 58 Year
  Sex: Female
  Weight: 71 kg

DRUGS (6)
  1. MABTHERA [Suspect]
     Indication: RHEUMATOID ARTHRITIS
     Dosage: 1 G, QAM
     Route: 042
     Dates: start: 20090724, end: 20090724
  2. MABTHERA [Suspect]
     Dosage: 1 G, QAM
     Route: 042
     Dates: start: 20090811, end: 20090811
  3. METHOTREXATE [Concomitant]
     Indication: RHEUMATOID ARTHRITIS
     Dosage: 10 MG, 1/WEEK
     Route: 048
  4. METHYLPREDNISOLONE [Concomitant]
     Indication: PREMEDICATION
     Dosage: DOSE REPORTED AS 2 TOTAL.
     Route: 042
  5. PIRITON [Concomitant]
     Indication: DRUG USE FOR UNKNOWN INDICATION
     Dosage: DURATION 18 DAY.
     Route: 048
     Dates: start: 20090724, end: 20090811
  6. PREDNISOLONE [Concomitant]
     Indication: DRUG USE FOR UNKNOWN INDICATION
     Dosage: 17.5 MG, UNK
     Route: 048
     Dates: start: 20090313

REACTIONS (1)
  - INTERSTITIAL LUNG DISEASE [None]
